FAERS Safety Report 21486928 (Version 2)
Quarter: 2022Q4

REPORT INFORMATION
  Report Type: Spontaneous
  Country: US (occurrence: US)
  Receive Date: 20221020
  Receipt Date: 20221107
  Transmission Date: 20230112
  Serious: Yes (Other)
  Sender: FDA-Public Use
  Company Number: US-TEVA-2022-US-2816683

PATIENT
  Age: 2 Year
  Sex: Female

DRUGS (5)
  1. ETOPOSIDE [Suspect]
     Active Substance: ETOPOSIDE
     Indication: Acute myeloid leukaemia
     Route: 065
  2. HYDROXYUREA [Suspect]
     Active Substance: HYDROXYUREA
     Indication: Acute myeloid leukaemia
     Route: 065
  3. VINCRISTINE [Suspect]
     Active Substance: VINCRISTINE
     Indication: Acute myeloid leukaemia
     Route: 065
  4. BORTEZOMIB [Suspect]
     Active Substance: BORTEZOMIB
     Indication: Acute myeloid leukaemia
     Dosage: 1.3 MG/M2, TWICE A WEEK (DAYS 1 AND 4)
     Route: 042
  5. VORINOSTAT [Concomitant]
     Active Substance: VORINOSTAT
     Indication: Acute myeloid leukaemia
     Dosage: 180 MG/M 2 /DOSE DAILY FOR 4 DOSES EACH WEEK (ON DAYS 1 TO 4).
     Route: 048

REACTIONS (3)
  - Pulmonary toxicity [Unknown]
  - Dyspnoea [Unknown]
  - Treatment failure [Unknown]
